FAERS Safety Report 8011867 (Version 3)
Quarter: 2013Q1

REPORT INFORMATION
  Report Type: Spontaneous
  Country: US (occurrence: US)
  Receive Date: 20110628
  Receipt Date: 20130313
  Transmission Date: 20140127
  Serious: Yes (Other)
  Sender: FDA-Public Use
  Company Number: US-ELI_LILLY_AND_COMPANY-US201104004945

PATIENT
  Age: 71 None
  Sex: Female

DRUGS (17)
  1. FORTEO [Suspect]
     Indication: OSTEOPOROSIS
     Dosage: 20 UG, QD
     Dates: start: 20110323
  2. FORTEO [Suspect]
     Dosage: 20 UG, QD
  3. FORTEO [Suspect]
     Dosage: 20 UG, QD
  4. FORTEO [Suspect]
     Dosage: 20 UG, QD
  5. FORTEO [Suspect]
     Dosage: 20 UG, QD
  6. SIMVASTATIN [Concomitant]
     Dosage: 40 MG, QD
  7. HYDROCHLOROTHIAZIDE [Concomitant]
     Dosage: 12.5 MG, QD
  8. LISINOPRIL [Concomitant]
     Dosage: 5 MG, QD
     Dates: start: 20110504
  9. SPIRIVA [Concomitant]
     Dosage: 18 UG, QD
  10. VITAMIN C [Concomitant]
     Dosage: 9000 MG, QD
  11. BIOTIN [Concomitant]
     Dosage: 5000 UG, QD
  12. GARLIC [Concomitant]
     Dosage: 1250 MG, QD
  13. POTASSIUM GLUCONATE [Concomitant]
     Dosage: 595 MG, QD
  14. GUAIFENESIN [Concomitant]
     Dosage: 400 MG, BID
  15. ACTONEL [Concomitant]
  16. ADVAIR [Concomitant]
     Dosage: UNK, BID
  17. CALCIUM +D3 [Concomitant]
     Dosage: UNK, TID

REACTIONS (9)
  - Cardiac murmur [Unknown]
  - Abdominal discomfort [Unknown]
  - Dizziness [Recovered/Resolved]
  - Dizziness [Recovered/Resolved]
  - Nausea [Recovered/Resolved]
  - Haematuria [Unknown]
  - Visual impairment [Recovered/Resolved]
  - Visual impairment [Unknown]
  - Drug dose omission [Unknown]
